FAERS Safety Report 16944899 (Version 1)
Quarter: 2019Q4

REPORT INFORMATION
  Report Type: Spontaneous
  Country: DE (occurrence: DE)
  Receive Date: 20191022
  Receipt Date: 20191022
  Transmission Date: 20200122
  Serious: Yes (Hospitalization)
  Sender: FDA-Public Use
  Company Number: DE-PFIZER INC-2019449578

PATIENT
  Age: 64 Year
  Sex: Male

DRUGS (2)
  1. OXYCODON [Concomitant]
     Active Substance: OXYCODONE
     Dosage: 10 MG, 2X/DAY 1-0-1
  2. INLYTA [Suspect]
     Active Substance: AXITINIB
     Indication: METASTATIC RENAL CELL CARCINOMA
     Dosage: 4TH LINE TREATMENT AT 5 MG 1-0-1

REACTIONS (5)
  - Visual impairment [Unknown]
  - Headache [Unknown]
  - Posterior reversible encephalopathy syndrome [Unknown]
  - Hypertension [Unknown]
  - Vomiting [Unknown]
